FAERS Safety Report 14481161 (Version 1)
Quarter: 2018Q1

REPORT INFORMATION
  Report Type: Spontaneous
  Country: US (occurrence: US)
  Receive Date: 20180202
  Receipt Date: 20180202
  Transmission Date: 20180509
  Serious: No
  Sender: FDA-Public Use
  Company Number: US-GLAXOSMITHKLINE-US2018014162

PATIENT
  Age: 57 Year
  Sex: Female

DRUGS (1)
  1. ABREVA [Suspect]
     Active Substance: DOCOSANOL
     Indication: ORAL HERPES
     Dosage: UNK
     Dates: start: 20180108, end: 20180111

REACTIONS (7)
  - Inappropriate schedule of drug administration [Unknown]
  - Wrong technique in product usage process [Unknown]
  - Lip swelling [Unknown]
  - Oral herpes [Unknown]
  - Condition aggravated [Unknown]
  - Hypersensitivity [Unknown]
  - Underdose [Unknown]

NARRATIVE: CASE EVENT DATE: 20180111
